FAERS Safety Report 16972118 (Version 2)
Quarter: 2019Q4

REPORT INFORMATION
  Report Type: Spontaneous
  Country: FR (occurrence: FR)
  Receive Date: 20191029
  Receipt Date: 20191129
  Transmission Date: 20200122
  Serious: Yes (Other)
  Sender: FDA-Public Use
  Company Number: NVSC2019FR017207

PATIENT
  Age: 54 Year
  Sex: Female
  Weight: 89 kg

DRUGS (4)
  1. COSENTYX [Suspect]
     Active Substance: SECUKINUMAB
     Indication: ANKYLOSING SPONDYLITIS
  2. COSENTYX [Suspect]
     Active Substance: SECUKINUMAB
     Indication: GASTRITIS
     Dosage: 150 MG
     Route: 058
     Dates: start: 201810, end: 201906
  3. OGAST [Concomitant]
     Active Substance: LANSOPRAZOLE
     Indication: GASTRITIS
     Dosage: 2 DF (OF 30), QD
     Route: 048
  4. DAFALGAN CODEINE [Concomitant]
     Active Substance: ACETAMINOPHEN\CODEINE PHOSPHATE
     Indication: ANKYLOSING SPONDYLITIS
     Dosage: 3 DF, QD
     Route: 065

REACTIONS (6)
  - Rhinorrhoea [Unknown]
  - Hypermetabolism [Unknown]
  - Fatigue [Unknown]
  - Tuberculosis [Recovering/Resolving]
  - Granuloma [Unknown]
  - Chronic sinusitis [Unknown]

NARRATIVE: CASE EVENT DATE: 201906
